FAERS Safety Report 6774230-8 (Version None)
Quarter: 2010Q2

REPORT INFORMATION
  Report Type: 
  Country: None (occurrence: None)
  Receive Date: 20100617
  Receipt Date: 20100609
  Transmission Date: 20101027
  Serious: Yes (Hospitalization)
  Sender: FDA-Public Use
  Company Number: FR-PFIZER INC-2010071926

PATIENT
  Sex: Female

DRUGS (5)
  1. CELEBREX [Suspect]
     Dosage: UNK
     Route: 048
     Dates: end: 20091031
  2. TROSPIUM CHLORIDE [Suspect]
     Dosage: UNK
     Route: 048
     Dates: end: 20091031
  3. NEBILOX [Suspect]
     Dosage: UNK
     Route: 048
     Dates: end: 20091031
  4. CRESTOR [Concomitant]
     Route: 048
  5. INIPOMP [Concomitant]
     Route: 048

REACTIONS (2)
  - RENAL FAILURE [None]
  - URINARY RETENTION [None]
